FAERS Safety Report 19749549 (Version 1)
Quarter: 2021Q3

REPORT INFORMATION
  Report Type: Spontaneous
  Country: US (occurrence: US)
  Receive Date: 20210824
  Receipt Date: 20210824
  Transmission Date: 20211014
  Serious: Yes (Hospitalization)
  Sender: FDA-Public Use
  Company Number: None

PATIENT
  Sex: Female

DRUGS (26)
  1. FLUTICASONE SPR [Concomitant]
  2. MONTELUKAST [Concomitant]
     Active Substance: MONTELUKAST SODIUM
  3. VITAMIN B6 [Concomitant]
     Active Substance: PYRIDOXINE HYDROCHLORIDE
  4. WAL?FEX ALLR [Concomitant]
  5. PENICILLIN VK [Concomitant]
     Active Substance: PENICILLIN V POTASSIUM
  6. VENTOLIN HFA [Concomitant]
     Active Substance: ALBUTEROL SULFATE
  7. ENBREL [Suspect]
     Active Substance: ETANERCEPT
  8. FOLIC ACID. [Concomitant]
     Active Substance: FOLIC ACID
  9. TRAMADOL HCL ER [Concomitant]
  10. CIPRO/DEXIA [Concomitant]
  11. ISONIAZID. [Concomitant]
     Active Substance: ISONIAZID
  12. METHOTREXATE. [Concomitant]
     Active Substance: METHOTREXATE
  13. CIPROFLOXACIN. [Concomitant]
     Active Substance: CIPROFLOXACIN
  14. LISINOPRIL. [Concomitant]
     Active Substance: LISINOPRIL
  15. OMEPRAZOLE. [Concomitant]
     Active Substance: OMEPRAZOLE
  16. PREGABALIN. [Concomitant]
     Active Substance: PREGABALIN
  17. CYCLOBENZAPR [Concomitant]
     Active Substance: CYCLOBENZAPRINE
  18. METHYLPRED [Concomitant]
     Active Substance: METHYLPREDNISOLONE
  19. MUPIROCIN OIN [Concomitant]
  20. NAPROXEN. [Concomitant]
     Active Substance: NAPROXEN
  21. PRAVASTATIN. [Concomitant]
     Active Substance: PRAVASTATIN
  22. TRAZODONE [Concomitant]
     Active Substance: TRAZODONE HYDROCHLORIDE
  23. LOSARTAN POT [Concomitant]
     Active Substance: LOSARTAN POTASSIUM
  24. METRONIDAZOL [Concomitant]
     Active Substance: METRONIDAZOLE
  25. PERMETHRIN. [Concomitant]
     Active Substance: PERMETHRIN
  26. PILOCARPINE. [Concomitant]
     Active Substance: PILOCARPINE

REACTIONS (2)
  - Furuncle [None]
  - Bone pain [None]
